FAERS Safety Report 9735791 (Version 2)
Quarter: 2015Q3

REPORT INFORMATION
  Report Type: Spontaneous
  Country: US (occurrence: US)
  Receive Date: 20131206
  Receipt Date: 20150804
  Transmission Date: 20151125
  Serious: No
  Sender: FDA-Public Use
  Company Number: US-GILEAD-2009-0023169

PATIENT
  Age: 32 Year
  Sex: Female

DRUGS (16)
  1. LETAIRIS [Suspect]
     Active Substance: AMBRISENTAN
     Indication: PULMONARY ARTERIAL HYPERTENSION
     Route: 048
     Dates: start: 20090530
  2. KEPPRA [Concomitant]
     Active Substance: LEVETIRACETAM
  3. LEVAQUIN [Concomitant]
     Active Substance: LEVOFLOXACIN
  4. PREDNISONE. [Concomitant]
     Active Substance: PREDNISONE
  5. REVATIO [Concomitant]
     Active Substance: SILDENAFIL CITRATE
  6. NADOLOL. [Concomitant]
     Active Substance: NADOLOL
  7. KLOR-CON [Concomitant]
     Active Substance: POTASSIUM CHLORIDE
  8. LEVOTHYROXINE. [Concomitant]
     Active Substance: LEVOTHYROXINE
  9. HYDROCHLOROTHIAZIDE/TRIAMTERENE [Concomitant]
  10. COMPLETE MULTIVITAMIN [Concomitant]
     Active Substance: VITAMINS
  11. IMURAN [Concomitant]
     Active Substance: AZATHIOPRINE
  12. FOLIC ACID. [Concomitant]
     Active Substance: FOLIC ACID
  13. PLAQUENIL [Concomitant]
     Active Substance: HYDROXYCHLOROQUINE SULFATE
  14. AMLODIPINE BESYLATE. [Concomitant]
     Active Substance: AMLODIPINE BESYLATE
  15. CITRUCEL [Concomitant]
     Active Substance: METHYLCELLULOSE (4000 MPA.S)
  16. VITAMIN C [Concomitant]
     Active Substance: ASCORBIC ACID

REACTIONS (2)
  - Peripheral swelling [Unknown]
  - Pain in extremity [Unknown]
